FAERS Safety Report 4837066-0 (Version None)
Quarter: 2005Q4

REPORT INFORMATION
  Report Type: 
  Country: None (occurrence: None)
  Receive Date: 20051121
  Receipt Date: 20051121
  Transmission Date: 20060501
  Serious: Yes (Hospitalization)
  Sender: FDA-Public Use
  Company Number: None

PATIENT
  Age: 40 Year
  Sex: Female
  Weight: 61.2356 kg

DRUGS (9)
  1. ZOCOR [Suspect]
     Indication: BLOOD CHOLESTEROL INCREASED
     Dosage: 40 MG PO QD
     Route: 048
  2. ZOCOR [Suspect]
     Indication: HYPERTENSION
     Dosage: 40 MG PO QD
     Route: 048
  3. PAXIL [Concomitant]
  4. ZOCOR [Concomitant]
  5. ZESTRIL [Concomitant]
  6. MINOXIDIL [Concomitant]
  7. METOPROLOL [Concomitant]
  8. LANTUS [Concomitant]
  9. ALBUTEROL [Concomitant]

REACTIONS (5)
  - ANAEMIA [None]
  - EOSINOPHILIA [None]
  - GENERALISED OEDEMA [None]
  - OEDEMA [None]
  - RENAL FAILURE [None]
